FAERS Safety Report 18460631 (Version 1)
Quarter: 2020Q4

REPORT INFORMATION
  Report Type: Spontaneous
  Country: US (occurrence: US)
  Receive Date: 20201104
  Receipt Date: 20201104
  Transmission Date: 20210114
  Serious: Yes (Hospitalization)
  Sender: FDA-Public Use
  Company Number: US-AUROBINDO-AUR-APL-2020-037468

PATIENT
  Sex: Female

DRUGS (1)
  1. LETROZOLE TABLETS USP 2.5 MG [Suspect]
     Active Substance: LETROZOLE
     Indication: PRODUCT USED FOR UNKNOWN INDICATION
     Dosage: 1 DOSAGE FORM, ONCE A DAY
     Route: 065

REACTIONS (3)
  - Urinary tract infection [Unknown]
  - Wrong technique in product usage process [Unknown]
  - Product use complaint [Unknown]
